FAERS Safety Report 12193441 (Version 2)
Quarter: 2016Q2

REPORT INFORMATION
  Report Type: Spontaneous
  Country: US (occurrence: US)
  Receive Date: 20160320
  Receipt Date: 20160401
  Transmission Date: 20160815
  Serious: No
  Sender: FDA-Public Use
  Company Number: US-B.I. PHARMACEUTICALS,INC./RIDGEFIELD-2016-BI-10251BP

PATIENT
  Sex: Male
  Weight: 61.23 kg

DRUGS (2)
  1. FLUNISOLIDE. [Concomitant]
     Active Substance: FLUNISOLIDE
     Indication: SEASONAL ALLERGY
     Dosage: FORMULATION: NASAL SPRAY; DOSE PER APPLICATION: 1 SPRAY; DAILY DOSE: 2 SPRAYS
     Route: 045
     Dates: start: 2015
  2. SPIRIVA [Suspect]
     Active Substance: TIOTROPIUM BROMIDE MONOHYDRATE
     Indication: CHRONIC OBSTRUCTIVE PULMONARY DISEASE
     Dosage: 18 MCG
     Route: 055
     Dates: start: 2014

REACTIONS (3)
  - Product quality issue [Recovered/Resolved]
  - Dyspnoea [Not Recovered/Not Resolved]
  - Dyspnoea [Not Recovered/Not Resolved]

NARRATIVE: CASE EVENT DATE: 2014
